FAERS Safety Report 6545872-X (Version None)
Quarter: 2010Q1

REPORT INFORMATION
  Report Type: 
  Country: None (occurrence: None)
  Receive Date: 20100121
  Receipt Date: 20090625
  Transmission Date: 20100710
  Serious: No
  Sender: FDA-Public Use
  Company Number: US-ALLERGAN-0908991US

PATIENT
  Sex: Female

DRUGS (2)
  1. TAZORAC [Suspect]
     Indication: ACNE
     Dosage: UNK, PRN
     Route: 061
     Dates: end: 20090612
  2. TAZORAC [Suspect]
     Dosage: UNK, QD
     Route: 061
     Dates: start: 20090613, end: 20090615

REACTIONS (1)
  - HEADACHE [None]
